FAERS Safety Report 4370079-4 (Version None)
Quarter: 2004Q2

REPORT INFORMATION
  Report Type: 
  Country: None (occurrence: None)
  Receive Date: 20040526
  Receipt Date: 20040203
  Transmission Date: 20050107
  Serious: Yes (Other)
  Sender: FDA-Public Use
  Company Number: SUS1-2004-00069

PATIENT
  Sex: Male

DRUGS (1)
  1. AGRYLIN (ANAGRELIDE  HYDROCHLORIDE) CAPSULE [Suspect]

REACTIONS (1)
  - CARDIOMYOPATHY [None]
